FAERS Safety Report 5697997-9 (Version None)
Quarter: 2008Q2

REPORT INFORMATION
  Report Type: 
  Country: None (occurrence: None)
  Receive Date: 20080408
  Receipt Date: 20080326
  Transmission Date: 20081010
  Serious: Yes (Hospitalization)
  Sender: FDA-Public Use
  Company Number: US-ELI_LILLY_AND_COMPANY-US200803006019

PATIENT
  Sex: Female

DRUGS (13)
  1. HUMALOG [Suspect]
     Dates: start: 20070101
  2. HUMULIN N [Suspect]
     Dates: start: 20000101
  3. HUMULIN 70/30 [Suspect]
     Dates: start: 20040101
  4. LANTUS [Concomitant]
  5. TOPROL-XL [Concomitant]
     Dosage: 50 UNK, UNK
  6. LASIX [Concomitant]
     Dosage: 40 UNK, UNK
  7. ZOLOFT [Concomitant]
     Dosage: 50 UNK, UNK
  8. K-DUR [Concomitant]
  9. ZESTRIL [Concomitant]
  10. ZOCOR [Concomitant]
     Dosage: 40 UNK, EACH EVENING
  11. ASPIRIN [Concomitant]
     Dosage: 162 MG, UNK
  12. CALTRATE [Concomitant]
     Dosage: 2 UNK, UNK
  13. CENTRUM SILVER [Concomitant]

REACTIONS (3)
  - CARDIAC OPERATION [None]
  - INJECTION SITE IRRITATION [None]
  - INJECTION SITE PAIN [None]
